FAERS Safety Report 5176946-6 (Version None)
Quarter: 2006Q4

REPORT INFORMATION
  Report Type: 
  Country: None (occurrence: None)
  Receive Date: 20061214
  Receipt Date: 20061110
  Transmission Date: 20070319
  Serious: Yes (Hospitalization)
  Sender: FDA-Public Use
  Company Number: PHRM2006FR03062

PATIENT
  Age: 27 Year
  Sex: Female
  Weight: 45 kg

DRUGS (2)
  1. MYFORTIC [Suspect]
     Indication: RENAL TRANSPLANT
     Dosage: 1440 MG PER DAY
     Route: 048
     Dates: start: 20061101, end: 20061109
  2. MYFORTIC [Suspect]
     Dosage: 720 MG DAILY
     Route: 048
     Dates: start: 20060921

REACTIONS (3)
  - DIARRHOEA HAEMORRHAGIC [None]
  - GASTROINTESTINAL DISORDER [None]
  - MEDICATION ERROR [None]
